FAERS Safety Report 17107785 (Version 1)
Quarter: 2019Q4

REPORT INFORMATION
  Report Type: Spontaneous
  Country: CN (occurrence: CN)
  Receive Date: 20191203
  Receipt Date: 20191203
  Transmission Date: 20200122
  Serious: Yes (Disabling)
  Sender: FDA-Public Use
  Company Number: CN-PFIZER INC-2019516260

PATIENT
  Age: 68 Year
  Sex: Female
  Weight: 66 kg

DRUGS (6)
  1. SODIUM CHLORIDE. [Concomitant]
     Active Substance: SODIUM CHLORIDE
     Indication: VEHICLE SOLUTION USE
     Dosage: 250 ML, 1X/DAY
     Route: 041
     Dates: start: 20191021, end: 20191111
  2. LIPITOR [Suspect]
     Active Substance: ATORVASTATIN CALCIUM
     Indication: LIPIDS ABNORMAL
     Dosage: 20 MG, 1X/DAY
     Route: 048
     Dates: start: 20191021, end: 20191111
  3. IRBESARTAN. [Suspect]
     Active Substance: IRBESARTAN
     Indication: BLOOD PRESSURE ABNORMAL
     Dosage: 0.15 G, 1X/DAY
     Route: 048
     Dates: start: 20191021, end: 20191112
  4. ASPIRIN (E.C.) [Suspect]
     Active Substance: ASPIRIN
     Indication: PLATELET AGGREGATION
     Dosage: 100 MG, 1X/DAY
     Route: 048
     Dates: start: 20191021, end: 20191112
  5. LI KANG LE [Concomitant]
     Indication: THERAPEUTIC PROCEDURE
     Dosage: 30 UG, 1X/DAY
     Route: 042
     Dates: start: 20191021, end: 20191112
  6. GINKGO BILOBA LEAF EXTRACT [Concomitant]
     Active Substance: GINKGO BILOBA LEAF EXTRACT
     Indication: THERAPEUTIC PROCEDURE
     Dosage: 52.5 MG, 1X/DAY
     Route: 041
     Dates: start: 20191021, end: 20191111

REACTIONS (7)
  - Alanine aminotransferase increased [Unknown]
  - Aspartate aminotransferase increased [Unknown]
  - Ocular icterus [Unknown]
  - Gamma-glutamyltransferase increased [Unknown]
  - Total bile acids increased [Unknown]
  - Blood bilirubin increased [Unknown]
  - Blood alkaline phosphatase increased [Unknown]

NARRATIVE: CASE EVENT DATE: 20191022
